FAERS Safety Report 4714050-9 (Version None)
Quarter: 2005Q3

REPORT INFORMATION
  Report Type: 
  Country: None (occurrence: None)
  Receive Date: 20050713
  Receipt Date: 20050713
  Transmission Date: 20060218
  Serious: Yes (Hospitalization)
  Sender: FDA-Public Use
  Company Number: None

PATIENT
  Sex: Male

DRUGS (18)
  1. PROMETHAZINE [Suspect]
     Indication: NAUSEA
     Dosage: 25 MG ONCE INTRAMUSCU
     Route: 030
     Dates: start: 20050329, end: 20050329
  2. ALBUTEROL [Concomitant]
  3. AMIODARONE [Concomitant]
  4. FERROUS SULFATE TAB [Concomitant]
  5. FINASTERIDE [Concomitant]
  6. FLUNISOLIDE [Concomitant]
  7. FORMOTEROL [Concomitant]
  8. FUROSEMIDE [Concomitant]
  9. GABAPENTIN [Concomitant]
  10. LEVOTHYROXINE [Concomitant]
  11. MELOXICAM [Concomitant]
  12. MULTIVITAMIN WITH MINERALS [Concomitant]
  13. OMEPRAZOLE [Concomitant]
  14. OXYCODONE AND ACETAMINOPHEN [Concomitant]
  15. TERASOZINE [Concomitant]
  16. TRAMADOL HCL [Concomitant]
  17. VALSARTAN [Concomitant]
  18. WARFARIN SODIUM [Concomitant]

REACTIONS (2)
  - DELIRIUM [None]
  - SEDATION [None]
